FAERS Safety Report 9681091 (Version 1)
Quarter: 2013Q4

REPORT INFORMATION
  Report Type: Spontaneous
  Country: US (occurrence: None)
  Receive Date: 20131108
  Receipt Date: 20131108
  Transmission Date: 20140711
  Serious: No
  Sender: FDA-Public Use
  Company Number: None

PATIENT
  Age: 13 Year
  Sex: Male
  Weight: 56.7 kg

DRUGS (1)
  1. CONCERTA [Suspect]
     Indication: ATTENTION DEFICIT/HYPERACTIVITY DISORDER
     Dosage: 2 PILLS ONCE DAILY
     Route: 048
     Dates: start: 20131001, end: 20131101

REACTIONS (5)
  - Mood swings [None]
  - Drug effect decreased [None]
  - Product substitution issue [None]
  - Product quality issue [None]
  - Disturbance in attention [None]
